FAERS Safety Report 7410043-1 (Version None)
Quarter: 2011Q2

REPORT INFORMATION
  Report Type: 
  Country: None (occurrence: None)
  Receive Date: 20110412
  Receipt Date: 20110331
  Transmission Date: 20111010
  Serious: Yes (Other)
  Sender: FDA-Public Use
  Company Number: US-PFIZER INC-US-WYE-H11366009

PATIENT
  Sex: Male

DRUGS (18)
  1. FISH OIL, HYDROGENATED [Concomitant]
  2. DOXEPIN HCL [Suspect]
     Dosage: UNK
  3. WELLBUTRIN [Suspect]
     Dosage: UNK
  4. CYMBALTA [Suspect]
     Dosage: UNK
  5. DEPAKOTE [Suspect]
     Dosage: UNK
  6. PAROXETINE [Suspect]
     Dosage: UNK
  7. ONE-A-DAY [Concomitant]
  8. TRAZODONE [Suspect]
     Dosage: UNK
  9. LEXAPRO [Suspect]
     Dosage: UNK
  10. PROZAC [Suspect]
     Dosage: UNK
  11. PRISTIQ [Suspect]
     Dosage: PATIENT TRIED TAKING HALF A TABLET
     Route: 048
     Dates: start: 20090301, end: 20090323
  12. PRISTIQ [Suspect]
     Indication: DEPRESSION
     Dosage: 50.0 MG, 1X/DAY
     Route: 048
     Dates: start: 20090316, end: 20090301
  13. EFFEXOR XR [Suspect]
     Indication: DEPRESSION
     Dosage: 75 MG, 1X/DAY
     Route: 048
     Dates: start: 19930101
  14. ZOLOFT [Suspect]
     Dosage: UNK
  15. ZYPREXA [Suspect]
     Dosage: UNK
  16. SEROQUEL [Suspect]
     Dosage: UNK
  17. MIRTAZAPINE [Suspect]
     Dosage: UNK
  18. PAXIL [Suspect]
     Dosage: UNK

REACTIONS (13)
  - DECREASED APPETITE [None]
  - SUICIDAL IDEATION [None]
  - DRUG EFFECT DECREASED [None]
  - DYSKINESIA [None]
  - NIGHTMARE [None]
  - DRUG INEFFECTIVE [None]
  - CONSTIPATION [None]
  - DIARRHOEA [None]
  - MUSCLE TWITCHING [None]
  - DRY MOUTH [None]
  - SUICIDE ATTEMPT [None]
  - TREMOR [None]
  - AGEUSIA [None]
